FAERS Safety Report 5963329-1 (Version None)
Quarter: 2008Q4

REPORT INFORMATION
  Report Type: 
  Country: None (occurrence: None)
  Receive Date: 20081124
  Receipt Date: 20081117
  Transmission Date: 20090506
  Serious: Yes (Death, Congenital Anomaly)
  Sender: FDA-Public Use
  Company Number: A0746202A

PATIENT
  Sex: Male

DRUGS (8)
  1. PAXIL [Suspect]
     Indication: DEPRESSION
     Dosage: 40MG UNKNOWN
  2. PAROXETINE HCL [Suspect]
     Dosage: 40MG PER DAY
     Dates: start: 19970101, end: 20070701
  3. TRILEPTAL [Concomitant]
     Indication: EPILEPSY
     Dosage: 600MG PER DAY
     Dates: start: 20040101, end: 20070101
  4. LIPITOR [Concomitant]
     Indication: BLOOD CHOLESTEROL INCREASED
     Dates: start: 19890101, end: 20070101
  5. LANTUS [Concomitant]
     Dates: start: 20040101, end: 20050101
  6. VITAMIN TAB [Concomitant]
  7. FOLIC ACID [Concomitant]
     Dates: start: 20040101, end: 20050101
  8. METFORMIN HCL [Concomitant]
     Dates: start: 20040101

REACTIONS (7)
  - ASPLENIA [None]
  - ATRIAL TACHYCARDIA [None]
  - BACTERIAL SEPSIS [None]
  - CONGENITAL ANOMALY [None]
  - DRUG EXPOSURE DURING PREGNANCY [None]
  - HYPOPLASTIC LEFT HEART SYNDROME [None]
  - RENAL FAILURE [None]
